FAERS Safety Report 7899546-3 (Version None)
Quarter: 2011Q4

REPORT INFORMATION
  Report Type: 
  Country: None (occurrence: None)
  Receive Date: 20111107
  Receipt Date: 20110915
  Transmission Date: 20120403
  Serious: No
  Sender: FDA-Public Use
  Company Number: US-AMGEN-USASP2011047647

PATIENT
  Age: 69 Year
  Sex: Female

DRUGS (1)
  1. ENBREL [Suspect]
     Indication: RHEUMATOID ARTHRITIS
     Dosage: 25 MG, 2 TIMES/WK
     Dates: start: 20110709

REACTIONS (6)
  - RHEUMATOID ARTHRITIS [None]
  - PAIN IN EXTREMITY [None]
  - LIMB DISCOMFORT [None]
  - MOBILITY DECREASED [None]
  - THERAPEUTIC RESPONSE DECREASED [None]
  - HEADACHE [None]
